FAERS Safety Report 7720457-8 (Version None)
Quarter: 2011Q3

REPORT INFORMATION
  Report Type: 
  Country: None (occurrence: None)
  Receive Date: 20110825
  Receipt Date: 20110810
  Transmission Date: 20111222
  Serious: Yes (Death)
  Sender: FDA-Public Use
  Company Number: OPER20110053

PATIENT
  Sex: Male
  Weight: 79.3795 kg

DRUGS (5)
  1. MARIJUANA (CANNABIS SATIVA) (INHALANT) [Suspect]
     Indication: DRUG ABUSE
  2. OPANA ER [Suspect]
     Indication: DRUG ABUSE
     Dosage: INHALATION
     Route: 055
  3. ACETAMINOPHEN [Suspect]
     Indication: DRUG ABUSE
  4. ALPRAZOLAM [Suspect]
     Indication: DRUG ABUSE
  5. HYDROCODONE BITARTRATE [Suspect]
     Indication: DRUG ABUSE

REACTIONS (11)
  - PULMONARY CONGESTION [None]
  - TOXICITY TO VARIOUS AGENTS [None]
  - INCORRECT ROUTE OF DRUG ADMINISTRATION [None]
  - CARDIO-RESPIRATORY ARREST [None]
  - DRUG ABUSE [None]
  - UNRESPONSIVE TO STIMULI [None]
  - OVERDOSE [None]
  - PLEURAL EFFUSION [None]
  - WRONG TECHNIQUE IN DRUG USAGE PROCESS [None]
  - URINARY RETENTION [None]
  - ACCIDENTAL DEATH [None]
